FAERS Safety Report 12970853 (Version 2)
Quarter: 2016Q4

REPORT INFORMATION
  Report Type: Spontaneous
  Country: US (occurrence: US)
  Receive Date: 20161123
  Receipt Date: 20161201
  Transmission Date: 20170207
  Serious: Yes (Life-Threatening, Hospitalization, Other)
  Sender: FDA-Public Use
  Company Number: US-ALLERGAN-1677417US

PATIENT
  Age: 43 Year
  Sex: Male

DRUGS (3)
  1. ATROPINE SULFATE SOLUTION, 1% [Suspect]
     Active Substance: ATROPINE SULFATE
     Indication: RETINAL DETACHMENT
     Route: 047
  2. OFLOXACIN. [Concomitant]
     Active Substance: OFLOXACIN
  3. PREDNISOLONE. [Concomitant]
     Active Substance: PREDNISOLONE

REACTIONS (2)
  - Accidental exposure to product [Unknown]
  - Anticholinergic syndrome [Recovered/Resolved]
